FAERS Safety Report 11621432 (Version 5)
Quarter: 2015Q4

REPORT INFORMATION
  Report Type: Report from Study
  Country: BR (occurrence: BR)
  Receive Date: 20151012
  Receipt Date: 20151124
  Transmission Date: 20160304
  Serious: Yes (Hospitalization, Other)
  Sender: FDA-Public Use
  Company Number: PHHY2015BR117452

PATIENT
  Age: 40 Year
  Sex: Male
  Weight: 75 kg

DRUGS (1)
  1. GILENYA [Suspect]
     Active Substance: FINGOLIMOD HYDROCHLORIDE
     Indication: MULTIPLE SCLEROSIS

REACTIONS (18)
  - Multiple sclerosis relapse [Recovered/Resolved]
  - Gait disturbance [Recovering/Resolving]
  - Fall [Not Recovered/Not Resolved]
  - Paraesthesia [Unknown]
  - Vision blurred [Not Recovered/Not Resolved]
  - Condition aggravated [Unknown]
  - Fatigue [Unknown]
  - Muscular weakness [Not Recovered/Not Resolved]
  - Headache [Recovering/Resolving]
  - Visual impairment [Not Recovered/Not Resolved]
  - Multiple sclerosis relapse [Recovering/Resolving]
  - Dysarthria [Recovering/Resolving]
  - Pain [Unknown]
  - Hypokinesia [Not Recovered/Not Resolved]
  - Hypoaesthesia [Recovering/Resolving]
  - Diplopia [Not Recovered/Not Resolved]
  - Decreased immune responsiveness [Not Recovered/Not Resolved]
  - Speech disorder [Not Recovered/Not Resolved]

NARRATIVE: CASE EVENT DATE: 201412
